APPROVED DRUG PRODUCT: EPHEDRINE SULFATE
Active Ingredient: EPHEDRINE SULFATE
Strength: 50MG/10ML (5MG/ML)
Dosage Form/Route: SOLUTION;INTRAVENOUS
Application: A218211 | Product #001 | TE Code: AP1
Applicant: GLAND PHARMA LTD
Approved: Jan 16, 2025 | RLD: No | RS: No | Type: RX